FAERS Safety Report 10522979 (Version 5)
Quarter: 2014Q4

REPORT INFORMATION
  Report Type: Spontaneous
  Country: JP (occurrence: JP)
  Receive Date: 20141016
  Receipt Date: 20141121
  Transmission Date: 20150528
  Serious: Yes (Hospitalization, Other)
  Sender: FDA-Public Use
  Company Number: JP-GLAXOSMITHKLINE-A201410643

PATIENT
  Age: 48 Year
  Sex: Male

DRUGS (13)
  1. TIVICAY [Suspect]
     Active Substance: DOLUTEGRAVIR SODIUM
     Indication: HIV INFECTION
     Dosage: 50 MG, QD
     Route: 048
     Dates: start: 20140801
  2. EPIVIR [Suspect]
     Active Substance: LAMIVUDINE
     Indication: HIV INFECTION
     Dosage: 300 MG, U
     Route: 048
     Dates: end: 201407
  3. CYTOTEC [Concomitant]
     Active Substance: MISOPROSTOL
     Indication: PROPHYLAXIS AGAINST GASTROINTESTINAL ULCER
     Dosage: 200 ?G, QD
     Dates: start: 20140731
  4. EPZICOM [Suspect]
     Active Substance: ABACAVIR SULFATE\LAMIVUDINE
     Indication: HIV INFECTION
     Dosage: 1 DF, QD
     Route: 048
     Dates: start: 20140801
  5. BENET [Concomitant]
     Active Substance: RISEDRONIC ACID
     Indication: OSTEONECROSIS
     Dosage: 75 MG, UNK
     Dates: start: 20140422
  6. VIREAD [Suspect]
     Active Substance: TENOFOVIR DISOPROXIL FUMARATE
     Dosage: 300 MG, U
  7. VOLTAREN [Concomitant]
     Active Substance: DICLOFENAC SODIUM
     Indication: ANALGESIC THERAPY
     Dosage: 37.5 MG, QD
     Dates: start: 20140630
  8. PREZISTANAIVE [Concomitant]
     Active Substance: DARUNAVIR
     Indication: HIV INFECTION
     Dosage: 800 MG, U
  9. SELBEX [Concomitant]
     Active Substance: TEPRENONE
     Indication: GASTRIC MUCOSAL LESION
     Dosage: 50 MG, TID
  10. ALINAMIN F [Concomitant]
     Active Substance: FURSULTIAMINE HYDROCHLORIDE
     Indication: VITAMIN SUPPLEMENTATION
     Dosage: 50 MG, BID
  11. CELECOX [Concomitant]
     Active Substance: CELECOXIB
     Indication: ANALGESIC THERAPY
     Dosage: 100 MG, BID
     Dates: start: 20140421
  12. NORVIR [Concomitant]
     Active Substance: RITONAVIR
     Indication: HIV INFECTION
     Dosage: 100 MG, U
  13. BIOFERMIN [Concomitant]
     Active Substance: BACILLUS SUBTILIS\LACTOBACILLUS ACIDOPHILUS\STREPTOCOCCUS FAECAIS
     Indication: GASTROINTESTINAL DISORDER
     Dosage: 1.0 G, TID

REACTIONS (12)
  - Blood urine present [Recovered/Resolved]
  - Chromaturia [Unknown]
  - Arthralgia [None]
  - Osteonecrosis [None]
  - Hydronephrosis [None]
  - Myalgia [Recovering/Resolving]
  - Pyelonephritis [Recovering/Resolving]
  - Calculus urinary [Not Recovered/Not Resolved]
  - Haematuria [Unknown]
  - Back pain [Recovered/Resolved]
  - Pyrexia [Recovering/Resolving]
  - Back pain [Unknown]

NARRATIVE: CASE EVENT DATE: 20140909
